FAERS Safety Report 17449266 (Version 2)
Quarter: 2020Q2

REPORT INFORMATION
  Report Type: Spontaneous
  Country: US (occurrence: US)
  Receive Date: 20200224
  Receipt Date: 20200410
  Transmission Date: 20200713
  Serious: No
  Sender: FDA-Public Use
  Company Number: US-TEVA-2018-US-918127

PATIENT
  Age: 62 Year
  Sex: Female

DRUGS (5)
  1. ALENDRONATE SODIUM TEVA [Suspect]
     Active Substance: ALENDRONATE SODIUM
     Indication: OSTEOPOROSIS
     Route: 065
     Dates: start: 20180330, end: 20180511
  2. PHENYTOIN MYLAN [Suspect]
     Active Substance: PHENYTOIN
     Indication: INTRACRANIAL ANEURYSM
  3. CALCIUM SUPPLEMENTS [Concomitant]
     Active Substance: CALCIUM
  4. ALENDRONATE SODIUM CIPLA [Suspect]
     Active Substance: ALENDRONATE SODIUM
     Route: 065
  5. PHENYTOIN MYLAN [Suspect]
     Active Substance: PHENYTOIN
     Indication: SEIZURE
     Dosage: 400 MILLIGRAM DAILY; 100MG CAPSULES OF PHENYTOIN TWO CAPSULES TWICE PER DAY FOR A TOTAL OF 400MG DAI
     Route: 065

REACTIONS (3)
  - Drug level decreased [Not Recovered/Not Resolved]
  - Drug ineffective [Unknown]
  - Product substitution issue [Unknown]

NARRATIVE: CASE EVENT DATE: 20180514
